FAERS Safety Report 25517921 (Version 3)
Quarter: 2025Q4

REPORT INFORMATION
  Report Type: Spontaneous
  Country: US (occurrence: US)
  Receive Date: 20250704
  Receipt Date: 20251212
  Transmission Date: 20260117
  Serious: No
  Sender: ALEXION PHARMACEUTICALS
  Company Number: US-AstraZeneca-CH-00901173A

PATIENT
  Sex: Female

DRUGS (1)
  1. STRENSIQ [Suspect]
     Active Substance: ASFOTASE ALFA
     Indication: Hypophosphatasia
     Dosage: 80 MILLIGRAM, PRN
     Dates: start: 2018

REACTIONS (2)
  - Injection site mass [Recovering/Resolving]
  - Calcinosis [Recovering/Resolving]

NARRATIVE: CASE EVENT DATE: 20180101
